FAERS Safety Report 22078673 (Version 1)
Quarter: 2023Q1

REPORT INFORMATION
  Report Type: Spontaneous
  Country: US (occurrence: US)
  Receive Date: 20230309
  Receipt Date: 20230309
  Transmission Date: 20230417
  Serious: No
  Sender: FDA-Public Use
  Company Number: US-MYLANLABS-2023M1022109

PATIENT
  Sex: Male
  Weight: 68.04 kg

DRUGS (1)
  1. FENTANYL TRANSDERMAL SYSTEM [Suspect]
     Active Substance: FENTANYL
     Indication: Pain
     Dosage: 25 MICROGRAM, QH, EVERY 2 DAYS
     Route: 062

REACTIONS (4)
  - Faeces soft [Unknown]
  - Faeces discoloured [Unknown]
  - Diarrhoea [Unknown]
  - Adverse drug reaction [Unknown]
